FAERS Safety Report 11003132 (Version 2)
Quarter: 2015Q2

REPORT INFORMATION
  Report Type: Report from Study
  Country: BR (occurrence: BR)
  Receive Date: 20150409
  Receipt Date: 20150427
  Transmission Date: 20150821
  Serious: Yes (Other)
  Sender: FDA-Public Use
  Company Number: BR-ROCHE-1561365

PATIENT
  Sex: Female
  Weight: 57 kg

DRUGS (4)
  1. HYDROCHLOROTHIAZIDE. [Concomitant]
     Active Substance: HYDROCHLOROTHIAZIDE
  2. LOSARTAN [Concomitant]
     Active Substance: LOSARTAN
  3. ACTEMRA [Suspect]
     Active Substance: TOCILIZUMAB
     Indication: RHEUMATOID ARTHRITIS
     Route: 042
     Dates: start: 20150227
  4. ARAVA [Concomitant]
     Active Substance: LEFLUNOMIDE

REACTIONS (2)
  - Arthropathy [Unknown]
  - Pain [Not Recovered/Not Resolved]
